FAERS Safety Report 6277920-9 (Version None)
Quarter: 2009Q3

REPORT INFORMATION
  Report Type: 
  Country: None (occurrence: None)
  Receive Date: 20090722
  Receipt Date: 20071001
  Transmission Date: 20100115
  Serious: Yes (Other)
  Sender: FDA-Public Use
  Company Number: US-ASTRAZENECA-2006UW21480

PATIENT
  Age: 17507 Day
  Sex: Male
  Weight: 155.1 kg

DRUGS (19)
  1. SEROQUEL [Suspect]
     Indication: SLEEP DISORDER
     Dosage: 25-100 MG AT NIGHT
     Route: 048
     Dates: start: 20031009
  2. SEROQUEL [Suspect]
     Route: 048
     Dates: start: 20031101, end: 20040301
  3. ABILIFY [Concomitant]
  4. RISPERDAL [Concomitant]
  5. GLUCOTROL [Concomitant]
     Dosage: 5-10 MG
     Route: 048
     Dates: start: 20000126
  6. NAPROSYN [Concomitant]
     Indication: PAIN
     Dates: start: 20000126
  7. NAPROSYN [Concomitant]
     Indication: ARTHRITIS
     Dates: start: 20000126
  8. GLUCOPHAGE [Concomitant]
     Route: 048
     Dates: start: 20000126
  9. ZESTRIL [Concomitant]
     Route: 048
     Dates: start: 20000126
  10. ZOLOFT [Concomitant]
     Dosage: 100-400 MG
     Route: 048
     Dates: start: 20000126
  11. AVANDIA [Concomitant]
     Dosage: 4-8 MG EVERY DAY
     Dates: start: 20000126
  12. EFFEXOR XR [Concomitant]
     Dosage: 37.5-150 MG
     Dates: start: 20000321
  13. GLUCOVANCE [Concomitant]
     Dosage: 15-1500 TO 20-2000 MG
     Route: 048
     Dates: start: 20020805
  14. ASPIRIN [Concomitant]
     Route: 048
     Dates: start: 20000126
  15. WELLBUTRIN SR [Concomitant]
     Route: 048
     Dates: start: 20031003
  16. ZOCOR [Concomitant]
     Dates: start: 20031003
  17. LITHOBID [Concomitant]
     Route: 048
     Dates: start: 20040430
  18. SYNTHROID [Concomitant]
     Route: 048
     Dates: start: 20040430
  19. BENZTROPINE MESYLATE [Concomitant]
     Dosage: 2 MG ONCE A DAY
     Route: 048
     Dates: start: 20040430

REACTIONS (4)
  - DIABETES MELLITUS [None]
  - DIABETIC NEUROPATHIC ULCER [None]
  - DIABETIC RETINOPATHY [None]
  - TARDIVE DYSKINESIA [None]
